FAERS Safety Report 8008158-2 (Version None)
Quarter: 2011Q4

REPORT INFORMATION
  Report Type: 
  Country: None (occurrence: None)
  Receive Date: 20111227
  Receipt Date: 20111216
  Transmission Date: 20120403
  Serious: Yes (Death, Hospitalization)
  Sender: FDA-Public Use
  Company Number: PHHO2011CN020932

PATIENT
  Sex: Female
  Weight: 51 kg

DRUGS (1)
  1. IMATINIB MESYLATE [Suspect]
     Indication: GASTROINTESTINAL STROMAL TUMOUR
     Dosage: 400 MG, QD
     Route: 048
     Dates: end: 20111123

REACTIONS (5)
  - TUMOUR HAEMORRHAGE [None]
  - ANAEMIA [None]
  - NEOPLASM MALIGNANT [None]
  - ASCITES [None]
  - NEOPLASM PROGRESSION [None]
